FAERS Safety Report 4987001-X (Version None)
Quarter: 2006Q2

REPORT INFORMATION
  Report Type: 
  Country: None (occurrence: None)
  Receive Date: 20060501
  Receipt Date: 20060419
  Transmission Date: 20061013
  Serious: Yes (Hospitalization, Other)
  Sender: FDA-Public Use
  Company Number: FR-BRISTOL-MYERS SQUIBB COMPANY-13353057

PATIENT
  Age: 78 Year
  Sex: Female

DRUGS (8)
  1. TAXOL [Suspect]
     Indication: LUNG NEOPLASM MALIGNANT
     Route: 042
     Dates: start: 20060224, end: 20060224
  2. CARBOPLATIN [Suspect]
     Indication: LUNG NEOPLASM MALIGNANT
     Route: 042
     Dates: start: 20060224, end: 20060224
  3. PREDNISONE TAB [Concomitant]
     Indication: PREMEDICATION
  4. POLARAMINE [Concomitant]
     Indication: PREMEDICATION
  5. CLARITIN [Concomitant]
  6. SECTRAL [Concomitant]
  7. ALDACTONE [Concomitant]
     Indication: HYPERTENSION
  8. FENOFIBRATE [Concomitant]
     Indication: HYPERCHOLESTEROLAEMIA

REACTIONS (7)
  - ARTHRALGIA [None]
  - DIARRHOEA [None]
  - FEBRILE NEUTROPENIA [None]
  - FLUSHING [None]
  - MYALGIA [None]
  - NEUROPATHY [None]
  - PYREXIA [None]
